FAERS Safety Report 8623306-9 (Version None)
Quarter: 2012Q3

REPORT INFORMATION
  Report Type: 
  Country: None (occurrence: None)
  Receive Date: 20120827
  Receipt Date: 20120816
  Transmission Date: 20120928
  Serious: Yes (Other)
  Sender: FDA-Public Use
  Company Number: US-ELI_LILLY_AND_COMPANY-US201208005890

PATIENT
  Age: 70 Year
  Sex: Male

DRUGS (2)
  1. CYMBALTA [Suspect]
     Dosage: 30 MG, QD
  2. CYMBALTA [Suspect]
     Indication: MUSCULOSKELETAL PAIN
     Dosage: 30 MG, BID

REACTIONS (2)
  - BLOOD COUNT ABNORMAL [None]
  - ANAEMIA [None]
